FAERS Safety Report 20187220 (Version 1)
Quarter: 2021Q4

REPORT INFORMATION
  Report Type: Spontaneous
  Country: US (occurrence: None)
  Receive Date: 20211214
  Receipt Date: 20211214
  Transmission Date: 20220303
  Serious: No
  Sender: FDA-Public Use
  Company Number: None

PATIENT
  Sex: Female

DRUGS (1)
  1. AMBRISENTAN [Suspect]
     Active Substance: AMBRISENTAN
     Indication: Pulmonary arterial hypertension
     Dosage: FREQUENCY : DAILY;?
     Route: 048
     Dates: start: 20190428

REACTIONS (10)
  - Influenza like illness [None]
  - Peripheral swelling [None]
  - Peripheral swelling [None]
  - Abdominal distension [None]
  - Weight increased [None]
  - Middle insomnia [None]
  - Dyspnoea [None]
  - Cough [None]
  - Haemoptysis [None]
  - Oxygen saturation decreased [None]
